FAERS Safety Report 7348055-9 (Version None)
Quarter: 2011Q1

REPORT INFORMATION
  Report Type: 
  Country: None (occurrence: None)
  Receive Date: 20110311
  Receipt Date: 20110303
  Transmission Date: 20110831
  Serious: Yes (Other)
  Sender: FDA-Public Use
  Company Number: US-AMGEN-USACT2011012174

PATIENT
  Age: 52 Year
  Sex: Male
  Weight: 87.9 kg

DRUGS (8)
  1. MEDROL [Concomitant]
     Dosage: UNK
     Dates: start: 20110207
  2. BUDESONIDE [Concomitant]
     Dosage: 3 MG, TID
     Dates: start: 20110221
  3. MYCOPHENOLATE [Concomitant]
     Dosage: UNK
     Dates: end: 20110217
  4. TACROLIMUS [Concomitant]
     Dosage: UNK
  5. LOMOTIL [Concomitant]
     Dosage: UNK
  6. IMODIUM [Concomitant]
  7. ETANERCEPT [Suspect]
     Indication: GRAFT VERSUS HOST DISEASE
     Dosage: UNK
     Dates: start: 20110125
  8. CAMPATH [Concomitant]

REACTIONS (3)
  - SYNCOPE [None]
  - GRAFT VERSUS HOST DISEASE [None]
  - BLISTER [None]
